FAERS Safety Report 13540751 (Version 1)
Quarter: 2017Q2

REPORT INFORMATION
  Report Type: Spontaneous
  Country: RU (occurrence: RU)
  Receive Date: 20170512
  Receipt Date: 20170512
  Transmission Date: 20170830
  Serious: Yes (Other)
  Sender: FDA-Public Use
  Company Number: RU-GILEAD-2017-0271958

PATIENT
  Age: 75 Year
  Sex: Female

DRUGS (12)
  1. ACEPER PLUS [Interacting]
     Active Substance: INDAPAMIDE\PERINDOPRIL ERBUMINE
     Indication: ANGINA PECTORIS
  2. ATORVASTATIN CALCIUM. [Interacting]
     Active Substance: ATORVASTATIN CALCIUM
     Indication: MYOCARDIAL ISCHAEMIA
     Route: 065
     Dates: start: 20170210
  3. TRIMETAZIDINE HYDROCHLORIDE [Interacting]
     Active Substance: TRIMETAZIDINE DIHYDROCHLORIDE
     Indication: ANGINA PECTORIS
  4. RANOLAZINE. [Suspect]
     Active Substance: RANOLAZINE
     Indication: ANGINA PECTORIS
     Route: 048
     Dates: start: 20170405, end: 20170405
  5. NEBILET [Interacting]
     Active Substance: NEBIVOLOL
     Indication: MYOCARDIAL ISCHAEMIA
  6. ACEPER PLUS [Interacting]
     Active Substance: INDAPAMIDE\PERINDOPRIL ERBUMINE
     Indication: HYPERTENSION
     Route: 065
     Dates: start: 20170210
  7. ACETYLSALICYLIC ACID [Concomitant]
     Active Substance: ASPIRIN
     Indication: MYOCARDIAL ISCHAEMIA
     Route: 065
     Dates: start: 20170210
  8. NEBILET [Interacting]
     Active Substance: NEBIVOLOL
     Indication: HYPERTENSION
     Route: 048
     Dates: start: 20170210
  9. LERKAMEN [Interacting]
     Active Substance: LERCANIDIPINE HYDROCHLORIDE
     Indication: MYOCARDIAL ISCHAEMIA
  10. LERKAMEN [Interacting]
     Active Substance: LERCANIDIPINE HYDROCHLORIDE
     Indication: HYPERTENSION
     Route: 065
     Dates: start: 20170404
  11. TRIMETAZIDINE HYDROCHLORIDE [Interacting]
     Active Substance: TRIMETAZIDINE DIHYDROCHLORIDE
     Indication: MYOCARDIAL ISCHAEMIA
     Route: 065
     Dates: start: 20170210, end: 20170404
  12. IVABRADINE HYDROCHLORIDE [Suspect]
     Active Substance: IVABRADINE HYDROCHLORIDE
     Indication: MYOCARDIAL ISCHAEMIA
     Route: 065
     Dates: start: 20170404

REACTIONS (6)
  - Drug interaction [Recovering/Resolving]
  - Dizziness [Recovering/Resolving]
  - Nausea [Recovering/Resolving]
  - Vomiting [Recovering/Resolving]
  - Blood pressure decreased [Recovering/Resolving]
  - Asthenia [Recovering/Resolving]

NARRATIVE: CASE EVENT DATE: 20170405
